FAERS Safety Report 17990791 (Version 1)
Quarter: 2020Q3

REPORT INFORMATION
  Report Type: Spontaneous
  Country: HR (occurrence: HR)
  Receive Date: 20200707
  Receipt Date: 20200707
  Transmission Date: 20201103
  Serious: Yes (Hospitalization)
  Sender: FDA-Public Use
  Company Number: HR-TEVA-2020-HR-1796041

PATIENT
  Age: 65 Year
  Sex: Female
  Weight: 45 kg

DRUGS (6)
  1. KLAVOCIN BID [Suspect]
     Active Substance: AMOXICILLIN\CLAVULANATE POTASSIUM
     Indication: DENTAL CARE
     Dosage: DF = 875 MG AMOXICILLIN + 125 MG CLAVULANATE
     Route: 048
     Dates: start: 201904, end: 201904
  2. TULIP [Concomitant]
     Indication: LIPID METABOLISM DISORDER
     Dosage: 20 MG
     Route: 048
  3. TOUJEO [Concomitant]
     Active Substance: INSULIN GLARGINE
     Indication: TYPE 2 DIABETES MELLITUS
     Dosage: 3 X 1,5
     Route: 058
  4. MEDAZOL [Suspect]
     Active Substance: METRONIDAZOLE
     Indication: DENTAL CARE
     Dosage: 400 MG
     Route: 048
     Dates: start: 20190416, end: 20190416
  5. CONCOR COR [Concomitant]
     Active Substance: BISOPROLOL FUMARATE
     Indication: TACHYCARDIA PAROXYSMAL
     Dosage: 1.25 MG
     Route: 048
  6. NOVORAPID [Concomitant]
     Active Substance: INSULIN ASPART
     Indication: TYPE 2 DIABETES MELLITUS
     Dosage: 3 ML
     Route: 058

REACTIONS (3)
  - Vomiting [Recovered/Resolved]
  - Nausea [Recovered/Resolved]
  - Abdominal pain upper [Recovered/Resolved]

NARRATIVE: CASE EVENT DATE: 20190416
